FAERS Safety Report 18973735 (Version 1)
Quarter: 2021Q1

REPORT INFORMATION
  Report Type: Spontaneous
  Country: US (occurrence: US)
  Receive Date: 20210305
  Receipt Date: 20210305
  Transmission Date: 20210420
  Serious: Yes (Other)
  Sender: FDA-Public Use
  Company Number: None

PATIENT
  Age: 69 Year
  Sex: Male

DRUGS (5)
  1. NINLARO [Suspect]
     Active Substance: IXAZOMIB CITRATE
     Indication: PLASMA CELL MYELOMA
     Dosage: ?          OTHER FREQUENCY:DAYS 1, 8 AND 15;?
     Route: 048
     Dates: start: 20201014
  2. DEXAMETHASONE 4MG TABLETS [Concomitant]
  3. FENTANYL TRANSDERMAL SYSTEM [Concomitant]
     Active Substance: FENTANYL
  4. FLEXERIL 10MG TABLETS [Concomitant]
  5. OXYCODONE 5MG IR CAPSULES [Concomitant]

REACTIONS (3)
  - Scab [None]
  - Burning sensation [None]
  - Rhinorrhoea [None]

NARRATIVE: CASE EVENT DATE: 20210109
